FAERS Safety Report 25891481 (Version 1)
Quarter: 2025Q4

REPORT INFORMATION
  Report Type: Spontaneous
  Country: EU (occurrence: EU)
  Receive Date: 20251007
  Receipt Date: 20251007
  Transmission Date: 20260118
  Serious: Yes (Disabling)
  Sender: ORGANON
  Company Number: EU-ORGANON-O2509FRA002339

PATIENT
  Age: 59 Year
  Sex: Female

DRUGS (4)
  1. FOSAVANCE [Suspect]
     Active Substance: ALENDRONATE SODIUM\CHOLECALCIFEROL
     Dosage: 1 DOSAGE FORM, QW (FIRST TABLET TAKEN ON SUNDAY)
     Dates: start: 20250914
  2. FOSAVANCE [Suspect]
     Active Substance: ALENDRONATE SODIUM\CHOLECALCIFEROL
     Dosage: 1 DOSAGE FORM, QW (SECOND TABLET TAKEN ON SUNDAY)
     Dates: start: 20250921
  3. vitamin D 3 drops [Concomitant]
     Dosage: UNK
  4. calcium tablets [Concomitant]
     Dosage: 2 TABLETS

REACTIONS (7)
  - Migraine [Not Recovered/Not Resolved]
  - Nausea [Not Recovered/Not Resolved]
  - Malaise [Not Recovered/Not Resolved]
  - Vertigo [Unknown]
  - Adverse event [Not Recovered/Not Resolved]
  - Pain [Not Recovered/Not Resolved]
  - Abdominal pain upper [Unknown]

NARRATIVE: CASE EVENT DATE: 20250901
